FAERS Safety Report 12552067 (Version 3)
Quarter: 2016Q3

REPORT INFORMATION
  Report Type: Spontaneous
  Country: IT (occurrence: IT)
  Receive Date: 20160713
  Receipt Date: 20160808
  Transmission Date: 20161109
  Serious: Yes (Hospitalization, Other)
  Sender: FDA-Public Use
  Company Number: IT-SUN PHARMACEUTICAL INDUSTRIES LTD-2016RR-120081

PATIENT
  Age: 50 Year
  Sex: Female

DRUGS (2)
  1. PARACETAMOL [Suspect]
     Active Substance: ACETAMINOPHEN
     Indication: MYALGIA
     Dosage: 1000 MG DAILY
     Route: 048
     Dates: start: 20160101, end: 20160103
  2. EXPOSE 100 MG [Suspect]
     Active Substance: EPERISONE HYDROCHLORIDE
     Indication: MYALGIA
     Dosage: 100 MG DAILY
     Route: 048
     Dates: start: 20160101, end: 20160103

REACTIONS (4)
  - Urticaria [Recovered/Resolved]
  - Dyspnoea [Recovered/Resolved]
  - Paraesthesia [Recovered/Resolved]
  - Drug hypersensitivity [Recovered/Resolved]

NARRATIVE: CASE EVENT DATE: 20160103
